FAERS Safety Report 10702751 (Version 3)
Quarter: 2015Q1

REPORT INFORMATION
  Report Type: Report from Study
  Country: US (occurrence: US)
  Receive Date: 20150110
  Receipt Date: 20150127
  Transmission Date: 20150721
  Serious: Yes (Hospitalization)
  Sender: FDA-Public Use
  Company Number: US-BRISTOL-MYERS SQUIBB COMPANY-21606090

PATIENT
  Age: 62 Year
  Sex: Male

DRUGS (7)
  1. BLINDED DAPAGLIFLOZIN [Suspect]
     Active Substance: DAPAGLIFLOZIN
     Indication: TYPE 2 DIABETES MELLITUS
     Dosage: UNK
     Route: 065
     Dates: start: 20140925, end: 20141111
  2. JANUMET [Concomitant]
     Active Substance: METFORMIN HYDROCHLORIDE\SITAGLIPTIN PHOSPHATE
     Indication: PRODUCT USED FOR UNKNOWN INDICATION
     Route: 065
  3. PLACEBO [Suspect]
     Active Substance: UNSPECIFIED INGREDIENT
     Indication: TYPE 2 DIABETES MELLITUS
     Dosage: UNK
     Route: 065
     Dates: start: 20140925, end: 20141111
  4. LISINOPRIL AND HYDROCHLOROTHIAZIDE [Concomitant]
     Active Substance: HYDROCHLOROTHIAZIDE\LISINOPRIL
     Indication: HYPERTENSION
     Route: 065
  5. OMEPRAZOL E [Concomitant]
     Active Substance: OMEPRAZOLE
     Indication: GASTROOESOPHAGEAL REFLUX DISEASE
     Route: 065
  6. AMLODIPINE [Concomitant]
     Active Substance: AMLODIPINE BESYLATE
     Indication: HYPERTENSION
     Route: 065
  7. CRESTOR [Concomitant]
     Active Substance: ROSUVASTATIN CALCIUM
     Indication: PRODUCT USED FOR UNKNOWN INDICATION
     Route: 065

REACTIONS (3)
  - Angina pectoris [Recovered/Resolved]
  - Coronary artery disease [Not Recovered/Not Resolved]
  - Non-cardiac chest pain [Recovered/Resolved]

NARRATIVE: CASE EVENT DATE: 20141001
